FAERS Safety Report 23464628 (Version 2)
Quarter: 2025Q2

REPORT INFORMATION
  Report Type: Report from Study
  Country: CZ (occurrence: CZ)
  Receive Date: 20240201
  Receipt Date: 20250629
  Transmission Date: 20250717
  Serious: Yes (Hospitalization, Other)
  Sender: AUROBINDO
  Company Number: CZ-TEVA-VS-3144895

PATIENT
  Age: 48 Year
  Sex: Male

DRUGS (3)
  1. SUMATRIPTAN [Suspect]
     Active Substance: SUMATRIPTAN
     Indication: Migraine
     Route: 065
     Dates: end: 2023
  2. METOPROLOL [Concomitant]
     Active Substance: METOPROLOL
     Indication: Hypertension
     Route: 065
     Dates: start: 202104
  3. VENLAFAXINE [Concomitant]
     Active Substance: VENLAFAXINE HYDROCHLORIDE
     Indication: Migraine
     Dosage: 75 MILLIGRAM, ONCE A DAY
     Route: 065

REACTIONS (3)
  - Intentional product misuse [Unknown]
  - Medication overuse headache [Recovered/Resolved]
  - Drug ineffective [Unknown]
